FAERS Safety Report 6383164-2 (Version None)
Quarter: 2009Q3

REPORT INFORMATION
  Report Type: 
  Country: None (occurrence: None)
  Receive Date: 20090929
  Receipt Date: 20090914
  Transmission Date: 20100115
  Serious: Yes (Death, Hospitalization)
  Sender: FDA-Public Use
  Company Number: 2009AL001468

PATIENT
  Age: 65 Year
  Sex: Male

DRUGS (15)
  1. DIGOXIN [Suspect]
     Dosage: UNKNOWN, UNK, PO
     Route: 048
  2. ACTOS [Concomitant]
  3. CELEXA [Concomitant]
  4. AASPIRIN [Concomitant]
  5. VIOXX [Concomitant]
  6. EPINEPHRINE [Concomitant]
  7. COUMADIN [Concomitant]
  8. HYZAAR [Concomitant]
  9. VYTORIN [Concomitant]
  10. METFORMIN HYDROCHLORIDE [Concomitant]
  11. BYETTA [Concomitant]
  12. VERAPIMIL [Concomitant]
  13. GLYBURIDE [Concomitant]
  14. NITROSTAT [Concomitant]
  15. TYLENOL (CAPLET) [Concomitant]

REACTIONS (10)
  - ANOXIC ENCEPHALOPATHY [None]
  - ANXIETY [None]
  - ECONOMIC PROBLEM [None]
  - FEAR [None]
  - GASTROINTESTINAL HAEMORRHAGE [None]
  - HYPOKALAEMIA [None]
  - INJURY [None]
  - SURGERY [None]
  - UNRESPONSIVE TO STIMULI [None]
  - VENTRICULAR FIBRILLATION [None]
